FAERS Safety Report 14194047 (Version 1)
Quarter: 2017Q4

REPORT INFORMATION
  Report Type: Spontaneous
  Country: FR (occurrence: FR)
  Receive Date: 20171116
  Receipt Date: 20171116
  Transmission Date: 20180321
  Serious: Yes (Other)
  Sender: FDA-Public Use
  Company Number: FR-MERCK KGAA-2034238

PATIENT
  Age: 71 Year
  Sex: Female

DRUGS (1)
  1. NOVOTHYROX [Suspect]
     Active Substance: LEVOTHYROXINE SODIUM
     Indication: PRODUCT USED FOR UNKNOWN INDICATION

REACTIONS (19)
  - Pelvic pain [None]
  - Tendon pain [None]
  - Decreased appetite [None]
  - Fatigue [None]
  - Chest discomfort [None]
  - Neck pain [None]
  - Erythema [None]
  - Blindness [None]
  - Dyspnoea [None]
  - Pain [None]
  - Onychoclasis [None]
  - Alopecia [None]
  - Tachycardia [None]
  - Mobility decreased [None]
  - Skin disorder [None]
  - Arthralgia [None]
  - Lung disorder [None]
  - Peripheral swelling [None]
  - Hypertension [None]

NARRATIVE: CASE EVENT DATE: 2017
